FAERS Safety Report 25411614 (Version 2)
Quarter: 2025Q2

REPORT INFORMATION
  Report Type: Spontaneous
  Country: ES (occurrence: ES)
  Receive Date: 20250609
  Receipt Date: 20250627
  Transmission Date: 20250717
  Serious: Yes (Life-Threatening, Hospitalization, Other)
  Sender: Kenvue
  Company Number: None

PATIENT

DRUGS (4)
  1. IBUPROFEN [Interacting]
     Active Substance: IBUPROFEN
     Indication: Suicide attempt
     Route: 048
     Dates: start: 20250425, end: 20250425
  2. ACETAMINOPHEN [Interacting]
     Active Substance: ACETAMINOPHEN
     Indication: Suicide attempt
     Route: 048
     Dates: start: 20250424, end: 20250425
  3. METAMIZOLE MAGNESIUM [Interacting]
     Active Substance: METAMIZOLE MAGNESIUM
     Indication: Suicide attempt
     Route: 048
     Dates: start: 20250425, end: 20250425
  4. NAPROXEN [Interacting]
     Active Substance: NAPROXEN
     Indication: Suicide attempt
     Route: 048
     Dates: start: 20250425, end: 20250425

REACTIONS (3)
  - Hepatocellular injury [Recovering/Resolving]
  - Coagulopathy [Recovered/Resolved]
  - Intentional overdose [Recovered/Resolved]

NARRATIVE: CASE EVENT DATE: 20250424
